FAERS Safety Report 9510752 (Version 3)
Quarter: 2013Q3

REPORT INFORMATION
  Report Type: Spontaneous
  Country: CA (occurrence: CA)
  Receive Date: 20130910
  Receipt Date: 20130913
  Transmission Date: 20140515
  Serious: Yes (Other)
  Sender: FDA-Public Use
  Company Number: CA-ROCHE-GNE300196

PATIENT
  Sex: Male
  Weight: 140 kg

DRUGS (6)
  1. XOLAIR [Suspect]
     Indication: ASTHMA
     Dosage: 375 MG, Q2W
     Route: 058
     Dates: start: 20060123
  2. XOLAIR [Suspect]
     Dosage: 375 MG, Q2W
     Route: 058
     Dates: start: 20100329
  3. XOLAIR [Suspect]
     Route: 065
     Dates: start: 20130309
  4. ADVAIR [Concomitant]
  5. NASONEX [Concomitant]
  6. VENTOLINE [Concomitant]

REACTIONS (3)
  - Gout [Unknown]
  - Blood pressure increased [Unknown]
  - Incorrect dose administered [Unknown]
